FAERS Safety Report 6767158-0 (Version None)
Quarter: 2010Q2

REPORT INFORMATION
  Report Type: 
  Country: None (occurrence: None)
  Receive Date: 20100614
  Receipt Date: 20100608
  Transmission Date: 20101027
  Serious: Yes (Life-Threatening, Hospitalization)
  Sender: FDA-Public Use
  Company Number: US-ELI_LILLY_AND_COMPANY-US201006002491

PATIENT
  Sex: Female

DRUGS (6)
  1. HUMALOG MIX 75/25 [Suspect]
     Indication: TYPE 2 DIABETES MELLITUS
     Dosage: 45 U, EACH MORNING
  2. HUMALOG MIX 75/25 [Suspect]
     Dosage: 28 U, EACH EVENING
  3. HUMALOG MIX 75/25 [Suspect]
     Dosage: UNK, AS NEEDED
  4. HUMALOG [Suspect]
  5. HUMALOG [Suspect]
  6. LANTUS [Concomitant]

REACTIONS (9)
  - ABDOMINAL PAIN [None]
  - ARTHRALGIA [None]
  - ATRIAL FIBRILLATION [None]
  - BURSITIS [None]
  - CARDIAC FAILURE CONGESTIVE [None]
  - CHOLECYSTITIS INFECTIVE [None]
  - DRUG PRESCRIBING ERROR [None]
  - MUSCLE RUPTURE [None]
  - MUSCULAR WEAKNESS [None]
